FAERS Safety Report 11471335 (Version 2)
Quarter: 2015Q3

REPORT INFORMATION
  Report Type: Spontaneous
  Country: US (occurrence: US)
  Receive Date: 20150903
  Receipt Date: 20150903
  Transmission Date: 20151125
  Serious: No
  Sender: FDA-Public Use
  Company Number: US-ELI_LILLY_AND_COMPANY-US201112006273

PATIENT
  Age: 60 Year
  Sex: Female

DRUGS (11)
  1. AMBIEN [Concomitant]
     Active Substance: ZOLPIDEM TARTRATE
  2. CYMBALTA [Suspect]
     Active Substance: DULOXETINE HYDROCHLORIDE
     Dosage: 30 MG, QOD
     Dates: end: 20111214
  3. VIVELLE DOT [Concomitant]
     Active Substance: ESTRADIOL
  4. DEXLANSOPRAZOLE [Concomitant]
     Active Substance: DEXLANSOPRAZOLE
  5. TRIAMTERENE. [Concomitant]
     Active Substance: TRIAMTERENE
  6. PRAMIPEXOLE DIHYDROCHLORIDE. [Concomitant]
     Active Substance: PRAMIPEXOLE DIHYDROCHLORIDE
  7. CYMBALTA [Suspect]
     Active Substance: DULOXETINE HYDROCHLORIDE
     Dosage: 60 MG, UNK
  8. ATIVAN [Concomitant]
     Active Substance: LORAZEPAM
  9. FLEXERIL [Concomitant]
     Active Substance: CYCLOBENZAPRINE HYDROCHLORIDE
  10. DIOVAN [Concomitant]
     Active Substance: VALSARTAN
  11. CYMBALTA [Suspect]
     Active Substance: DULOXETINE HYDROCHLORIDE
     Indication: FIBROMYALGIA
     Dosage: UNK UNK, UNKNOWN
     Dates: start: 201002

REACTIONS (16)
  - Influenza like illness [Recovered/Resolved]
  - Panic attack [Recovered/Resolved]
  - Abnormal dreams [Recovered/Resolved]
  - Nerve compression [Unknown]
  - Dyspepsia [Recovered/Resolved]
  - Insomnia [Unknown]
  - Nightmare [Recovered/Resolved]
  - Chills [Recovered/Resolved]
  - Hypertension [Unknown]
  - Feeling jittery [Recovered/Resolved]
  - Drug withdrawal syndrome [Recovered/Resolved]
  - Hyperhidrosis [Recovered/Resolved]
  - Headache [Recovered/Resolved]
  - Gastrointestinal disorder [Recovered/Resolved]
  - Drug effect incomplete [Unknown]
  - Gastrooesophageal reflux disease [Unknown]

NARRATIVE: CASE EVENT DATE: 201005
